FAERS Safety Report 5022197-5 (Version None)
Quarter: 2006Q2

REPORT INFORMATION
  Report Type: 
  Country: None (occurrence: None)
  Receive Date: 20060609
  Receipt Date: 20060503
  Transmission Date: 20061013
  Serious: Yes (Hospitalization)
  Sender: FDA-Public Use
  Company Number: FR-BRISTOL-MYERS SQUIBB COMPANY-13368261

PATIENT
  Age: 22 Year
  Sex: Male

DRUGS (4)
  1. ABILIFY [Suspect]
     Indication: SCHIZOPHRENIA
     Route: 048
     Dates: start: 20060325, end: 20060424
  2. TEMESTA [Concomitant]
     Dates: start: 20060422
  3. IXEL [Concomitant]
  4. TERCIAN [Concomitant]
     Dates: start: 20060325, end: 20060422

REACTIONS (7)
  - ANXIETY [None]
  - BACK PAIN [None]
  - BLOOD CREATINE PHOSPHOKINASE INCREASED [None]
  - CATATONIA [None]
  - HYPERHIDROSIS [None]
  - PALLOR [None]
  - RHABDOMYOLYSIS [None]
